FAERS Safety Report 12834131 (Version 1)
Quarter: 2016Q4

REPORT INFORMATION
  Report Type: Spontaneous
  Country: US (occurrence: US)
  Receive Date: 20161010
  Receipt Date: 20161010
  Transmission Date: 20170207
  Serious: Yes (Hospitalization)
  Sender: FDA-Public Use
  Company Number: US-INSYS THERAPEUTICS, INC-INS201609-000560

PATIENT
  Sex: Female

DRUGS (3)
  1. SUBSYS [Suspect]
     Active Substance: FENTANYL
     Indication: BREAKTHROUGH PAIN
     Route: 060
  2. MORPHINE [Concomitant]
     Active Substance: MORPHINE
  3. OXYCODONE [Concomitant]
     Active Substance: OXYCODONE

REACTIONS (1)
  - Neoplasm progression [Unknown]
